FAERS Safety Report 5077494-4 (Version None)
Quarter: 2006Q3

REPORT INFORMATION
  Report Type: 
  Country: None (occurrence: None)
  Receive Date: 20060810
  Receipt Date: 20060315
  Transmission Date: 20061208
  Serious: No
  Sender: FDA-Public Use
  Company Number: US-GLAXOSMITHKLINE-A0597684A

PATIENT
  Age: 39 Year
  Sex: Female

DRUGS (3)
  1. PAXIL [Suspect]
     Indication: PREMENSTRUAL SYNDROME
     Dosage: 10MG PER DAY
     Route: 048
  2. WELLBUTRIN XL [Suspect]
     Indication: PREMENSTRUAL SYNDROME
     Dosage: 150MG PER DAY
     Route: 048
  3. ACETAMINOPHEN [Concomitant]

REACTIONS (3)
  - AGITATION [None]
  - DEPRESSION [None]
  - SOMNOLENCE [None]
